FAERS Safety Report 8917758 (Version 1)
Quarter: 2012Q4

REPORT INFORMATION
  Report Type: 
  Country: CA (occurrence: CA)
  Receive Date: 20121120
  Receipt Date: 20121120
  Transmission Date: 20130627
  Serious: Yes (Other)
  Sender: FDA-Public Use
  Company Number: CA-BRISTOL-MYERS SQUIBB COMPANY-17125774

PATIENT
  Age: 53 Year
  Sex: Female
  Weight: 58.05 kg

DRUGS (5)
  1. ONGLYZA TABS 5 MG [Suspect]
     Dosage: film coated tabs
     Route: 048
  2. ASAPHEN [Concomitant]
  3. ESTRACE TABS [Concomitant]
  4. LIPITOR [Concomitant]
     Dosage: tabs
  5. METFORMIN HCL [Concomitant]

REACTIONS (1)
  - Anaemia [Not Recovered/Not Resolved]
